FAERS Safety Report 25076248 (Version 1)
Quarter: 2025Q1

REPORT INFORMATION
  Report Type: Spontaneous
  Country: US (occurrence: None)
  Receive Date: 20250313
  Receipt Date: 20250313
  Transmission Date: 20250408
  Serious: Yes (Hospitalization)
  Sender: FDA-CTU
  Company Number: None

PATIENT
  Age: 73 Year
  Sex: Female
  Weight: 67.1 kg

DRUGS (1)
  1. KISUNLA [Suspect]
     Active Substance: DONANEMAB-AZBT

REACTIONS (6)
  - Amyloid related imaging abnormalities [None]
  - Brain oedema [None]
  - Dizziness [None]
  - Hyperhidrosis [None]
  - Vision blurred [None]
  - Transient ischaemic attack [None]

NARRATIVE: CASE EVENT DATE: 20240312
